FAERS Safety Report 15937494 (Version 3)
Quarter: 2019Q2

REPORT INFORMATION
  Report Type: Spontaneous
  Country: US (occurrence: US)
  Receive Date: 20190208
  Receipt Date: 20190416
  Transmission Date: 20190711
  Serious: Yes (Hospitalization, Other)
  Sender: FDA-Public Use
  Company Number: US-ASTRAZENECA-2019SE11913

PATIENT
  Age: 18867 Day
  Sex: Male
  Weight: 113.4 kg

DRUGS (26)
  1. VOLTAREN [Concomitant]
     Active Substance: DICLOFENAC SODIUM
     Dates: start: 20150331
  2. CITALOPRAM [Concomitant]
     Active Substance: CITALOPRAM HYDROBROMIDE
     Dates: start: 20101015
  3. FUROSEMIDE. [Concomitant]
     Active Substance: FUROSEMIDE
     Dates: start: 20150623
  4. GABAPENTIN. [Concomitant]
     Active Substance: GABAPENTIN
     Dates: start: 20160701
  5. NEXIUM 24HR [Suspect]
     Active Substance: ESOMEPRAZOLE MAGNESIUM
     Route: 048
     Dates: start: 20150101, end: 20151001
  6. PRILOSEC [Suspect]
     Active Substance: OMEPRAZOLE MAGNESIUM
     Indication: GASTROOESOPHAGEAL REFLUX DISEASE
     Route: 048
  7. METRONIDAZOLE. [Concomitant]
     Active Substance: METRONIDAZOLE
     Dates: start: 20140417
  8. DIAZEPAM. [Concomitant]
     Active Substance: DIAZEPAM
     Dates: start: 20150709
  9. OXYCODONE [Concomitant]
     Active Substance: OXYCODONE
     Dates: start: 20131101
  10. PREVACID 24 HR [Suspect]
     Active Substance: LANSOPRAZOLE
     Route: 065
     Dates: start: 20150101, end: 20151001
  11. PROTONIX [Suspect]
     Active Substance: PANTOPRAZOLE SODIUM
     Dosage: 40 MG
     Route: 065
     Dates: start: 2015
  12. CETIRIZINE [Concomitant]
     Active Substance: CETIRIZINE HYDROCHLORIDE
     Dates: start: 20170131
  13. TIZANIDINE. [Concomitant]
     Active Substance: TIZANIDINE
     Dates: start: 20160701
  14. CEPHALEXIN. [Concomitant]
     Active Substance: CEPHALEXIN
     Dates: start: 20161028
  15. AMITRIPTYLINE [Concomitant]
     Active Substance: AMITRIPTYLINE
     Dates: start: 20140627
  16. VALSARTAN. [Concomitant]
     Active Substance: VALSARTAN
     Dates: start: 20140711
  17. PRILOSEC [Suspect]
     Active Substance: OMEPRAZOLE MAGNESIUM
     Indication: GASTROOESOPHAGEAL REFLUX DISEASE
     Dosage: 20 MG
     Route: 065
     Dates: start: 2015, end: 2019
  18. PRILOSEC OTC [Suspect]
     Active Substance: OMEPRAZOLE MAGNESIUM
     Indication: GASTROOESOPHAGEAL REFLUX DISEASE
     Route: 048
     Dates: start: 20150101, end: 20151001
  19. VIAGRA [Concomitant]
     Active Substance: SILDENAFIL CITRATE
     Dates: start: 20150825
  20. NOVOLIN [Concomitant]
     Active Substance: INSULIN HUMAN
     Dates: start: 20150512
  21. FOLIC ACID. [Concomitant]
     Active Substance: FOLIC ACID
     Dates: start: 20150623
  22. PRILOSEC OTC [Suspect]
     Active Substance: OMEPRAZOLE MAGNESIUM
     Indication: GASTROOESOPHAGEAL REFLUX DISEASE
     Dosage: 20 MG
     Route: 048
     Dates: start: 2015
  23. MORPHINE [Concomitant]
     Active Substance: MORPHINE
     Dates: start: 20170327
  24. LIDOCAINE. [Concomitant]
     Active Substance: LIDOCAINE
     Dates: start: 20161129
  25. CYCLOBENZAPRINE. [Concomitant]
     Active Substance: CYCLOBENZAPRINE
     Dates: start: 20150813
  26. LOSARTAN. [Concomitant]
     Active Substance: LOSARTAN
     Dates: start: 20110714

REACTIONS (4)
  - Chronic kidney disease [Not Recovered/Not Resolved]
  - Hyperparathyroidism secondary [Unknown]
  - Acute kidney injury [Not Recovered/Not Resolved]
  - Renal failure [Unknown]

NARRATIVE: CASE EVENT DATE: 20150611
